FAERS Safety Report 20029393 (Version 1)
Quarter: 2021Q4

REPORT INFORMATION
  Report Type: Spontaneous
  Country: US (occurrence: US)
  Receive Date: 20211103
  Receipt Date: 20211103
  Transmission Date: 20220303
  Serious: Yes (Other)
  Sender: FDA-Public Use
  Company Number: US-Accord-244212

PATIENT
  Age: 74 Year
  Sex: Male
  Weight: 87.54 kg

DRUGS (1)
  1. OXYBUTYNIN CHLORIDE [Suspect]
     Active Substance: OXYBUTYNIN CHLORIDE
     Indication: Product used for unknown indication
     Dosage: STRENGTH: 10 MG

REACTIONS (1)
  - Erectile dysfunction [Unknown]
